FAERS Safety Report 6577881-9 (Version None)
Quarter: 2010Q1

REPORT INFORMATION
  Report Type: 
  Country: None (occurrence: None)
  Receive Date: 20100211
  Receipt Date: 20100201
  Transmission Date: 20100710
  Serious: Yes (Life-Threatening, Hospitalization, Other)
  Sender: FDA-Public Use
  Company Number: GB-PFIZER INC-2010013331

PATIENT
  Age: 73 Year
  Sex: Female

DRUGS (3)
  1. DOXYCYCLINE HYCLATE [Suspect]
     Indication: LOWER RESPIRATORY TRACT INFECTION
     Dosage: 100 MG, UNK
     Dates: start: 20100105, end: 20100119
  2. SIMVASTATIN [Suspect]
     Indication: HYPERCHOLESTEROLAEMIA
     Dosage: 80 MG, 1X/DAY
     Route: 048
     Dates: start: 20091123, end: 20100123
  3. PSEUDOEPHEDRINE [Suspect]
     Indication: NASAL DECONGESTION THERAPY
     Dosage: 60 MG, 3X/DAY
     Route: 048
     Dates: start: 20100105, end: 20100112

REACTIONS (4)
  - DYSGEUSIA [None]
  - LIVER DISORDER [None]
  - MUSCLE SPASMS [None]
  - RENAL IMPAIRMENT [None]
